FAERS Safety Report 5780034-5 (Version None)
Quarter: 2008Q2

REPORT INFORMATION
  Report Type: 
  Country: None (occurrence: None)
  Receive Date: 20080620
  Receipt Date: 20080614
  Transmission Date: 20081010
  Serious: Yes (Other)
  Sender: FDA-Public Use
  Company Number: GB-ROCHE-570462

PATIENT
  Sex: Female
  Weight: 92.5 kg

DRUGS (15)
  1. ORLISTAT [Suspect]
     Indication: OBESITY
     Route: 048
     Dates: start: 20080103, end: 20080531
  2. SIMVASTATIN [Concomitant]
     Dosage: REPORTED AS SIMVISTATIN
     Route: 048
  3. METFORMIN [Concomitant]
     Route: 048
  4. UNSPECIFIED MEDICATION [Concomitant]
     Dosage: REPORTED BY PATIENT AS RAMOPRISIL
     Route: 048
  5. VENTOLIN [Concomitant]
     Indication: ASTHMA
     Dosage: SPRAY
  6. TIOTROPIUM [Concomitant]
     Route: 048
  7. BUDESONIDE/FORMOTEROL [Concomitant]
     Dosage: REPORTED AS BUDESONIDE FORNOTEROL DOSAGE 200 2 PUFFS 3 X DAY
     Route: 048
  8. BUDESONIDE/FORMOTEROL [Concomitant]
     Dosage: REPORTED AS BUDESONIDE FORNOTEROL DOSAGE 200 2 PUFFS 3 X DAY
     Route: 048
  9. GLIMEPIRIDE [Concomitant]
     Dosage: REPORTED AS GLYMEPIRIDE
     Route: 048
  10. LEVOTHYROXINE SODIUM [Concomitant]
     Indication: HYPOTHYROIDISM
     Dosage: REPORTED AS LEVOTHRYOXIN
     Route: 048
  11. LANSOPRAZOLE [Concomitant]
     Indication: THYROID DISORDER
     Dosage: REPORTED AS LANZAPROZOLE
     Route: 048
  12. OMEGA [Concomitant]
     Dosage: REPORTED AS OMEGA 3 PRESCRIBED FOR SUPPLEMENTS
     Route: 048
  13. OMEGA [Concomitant]
     Dosage: REPORTED AS OMEGA 3 PRESCRIBED FOR SUPPLEMENTS
     Route: 048
  14. OMEGA [Concomitant]
     Dosage: REPORTED AS OMEGA 3 PRESCRIBED FOR SUPPLEMENTS
     Route: 048
  15. TETRACYCLINE [Concomitant]
     Indication: ANTIBIOTIC THERAPY
     Route: 048

REACTIONS (1)
  - CERVIX CARCINOMA [None]
